FAERS Safety Report 25131070 (Version 1)
Quarter: 2025Q1

REPORT INFORMATION
  Report Type: Spontaneous
  Country: FR (occurrence: FR)
  Receive Date: 20250327
  Receipt Date: 20250327
  Transmission Date: 20250409
  Serious: Yes (Hospitalization)
  Sender: MYLAN
  Company Number: None

PATIENT
  Age: 87 Year
  Sex: Male
  Weight: 80 kg

DRUGS (22)
  1. DEXAMETHASONE [Suspect]
     Active Substance: DEXAMETHASONE
     Indication: Monoclonal gammopathy
     Dates: start: 20241014, end: 20241014
  2. DEXAMETHASONE [Suspect]
     Active Substance: DEXAMETHASONE
     Dates: start: 20241104, end: 20241104
  3. DEXAMETHASONE [Suspect]
     Active Substance: DEXAMETHASONE
     Dates: start: 20241125, end: 20241125
  4. DEXAMETHASONE [Suspect]
     Active Substance: DEXAMETHASONE
     Dates: start: 20241216, end: 20241216
  5. CYCLOPHOSPHAMIDE [Suspect]
     Active Substance: CYCLOPHOSPHAMIDE
     Indication: Monoclonal gammopathy
     Dosage: 350 MILLIGRAM, QD (DAY 2 TO DAY 6)
     Dates: start: 20241015, end: 20241019
  6. CYCLOPHOSPHAMIDE [Suspect]
     Active Substance: CYCLOPHOSPHAMIDE
     Dosage: 350 MILLIGRAM, QD (DAY 2 TO DAY 6)
     Dates: start: 20241105, end: 20241110
  7. CYCLOPHOSPHAMIDE [Suspect]
     Active Substance: CYCLOPHOSPHAMIDE
     Dosage: 350 MILLIGRAM, QD (DAY 2 TO DAY 6)
     Dates: start: 20241126, end: 20241130
  8. CYCLOPHOSPHAMIDE [Suspect]
     Active Substance: CYCLOPHOSPHAMIDE
     Dosage: 350 MILLIGRAM, QD (DAY 2 TO DAY 6)
     Dates: start: 20241217, end: 20241221
  9. RITUXIMAB [Suspect]
     Active Substance: RITUXIMAB
     Indication: Monoclonal gammopathy
     Dates: start: 20241014, end: 20241014
  10. RITUXIMAB [Suspect]
     Active Substance: RITUXIMAB
     Dates: start: 20241104, end: 20241104
  11. RITUXIMAB [Suspect]
     Active Substance: RITUXIMAB
     Dates: start: 20241125, end: 20241125
  12. RITUXIMAB [Suspect]
     Active Substance: RITUXIMAB
     Dates: start: 20241216, end: 20241216
  13. ATENOLOL [Concomitant]
     Active Substance: ATENOLOL
     Dosage: 25 MILLIGRAM, BID (1/2-0-1/2)
  14. AMIODARONE [Concomitant]
     Active Substance: AMIODARONE
     Dosage: 200 MILLIGRAM, QD (IN THE MORNING)
  15. LERCANIDIPINE [Concomitant]
     Active Substance: LERCANIDIPINE
  16. ELIQUIS [Concomitant]
     Active Substance: APIXABAN
     Dosage: 5 MILLIGRAM, BID (MORNING AND EVENING)
  17. CLOPIDOGREL [Concomitant]
     Active Substance: CLOPIDOGREL BISULFATE
     Dosage: 75 MILLIGRAM, QD (IN THE MORNING)
  18. LIPTRUZET [Concomitant]
     Active Substance: ATORVASTATIN CALCIUM\EZETIMIBE
     Dosage: UNK, QD (1 IN THE EVENING)
  19. PANTOPRAZOLE [Concomitant]
     Active Substance: PANTOPRAZOLE
     Dosage: 20 MILLIGRAM, QD (IN THE EVENING)
  20. PREGABALIN [Concomitant]
     Active Substance: PREGABALIN
     Dosage: UNK, BID (50 MG 1/2-0-1)
  21. VALACYCLOVIR HYDROCHLORIDE [Concomitant]
     Active Substance: VALACYCLOVIR HYDROCHLORIDE
     Dosage: 500 MILLIGRAM, BID (MORNING AND EVENING)
  22. LORATADINE [Concomitant]
     Active Substance: LORATADINE
     Dosage: 10 MILLIGRAM, QD (IN THE EVENING)

REACTIONS (1)
  - Acute myocardial infarction [Recovered/Resolved]

NARRATIVE: CASE EVENT DATE: 20241115
